FAERS Safety Report 5061942-X (Version None)
Quarter: 2006Q3

REPORT INFORMATION
  Report Type: 
  Country: None (occurrence: None)
  Receive Date: 20060721
  Receipt Date: 20060704
  Transmission Date: 20061208
  Serious: Yes (Other)
  Sender: FDA-Public Use
  Company Number: JP200607000236

PATIENT
  Age: 44 Year
  Sex: Female

DRUGS (1)
  1. OLANZAPINE [Suspect]
     Dosage: ORAL
     Route: 048

REACTIONS (2)
  - APPENDICITIS [None]
  - SEPSIS [None]
